FAERS Safety Report 10219077 (Version 1)
Quarter: 2014Q2

REPORT INFORMATION
  Report Type: Spontaneous
  Country: US (occurrence: None)
  Receive Date: 20140604
  Receipt Date: 20140604
  Transmission Date: 20141212
  Serious: No
  Sender: FDA-Public Use
  Company Number: None

PATIENT
  Age: 30 Year
  Sex: Female
  Weight: 51.71 kg

DRUGS (2)
  1. EFFEXOR 75 [Suspect]
     Indication: PANIC ATTACK
     Dosage: 30 DOSE ONCE DAILY TAKEN BY MOUTH
     Route: 048
     Dates: start: 20140301, end: 20140603
  2. EFFEXOR 75 [Suspect]
     Indication: ANXIETY
     Dosage: 30 DOSE ONCE DAILY TAKEN BY MOUTH
     Route: 048
     Dates: start: 20140301, end: 20140603

REACTIONS (1)
  - Drug screen positive [None]
